FAERS Safety Report 23930996 (Version 2)
Quarter: 2024Q2

REPORT INFORMATION
  Report Type: Spontaneous
  Country: CN (occurrence: CN)
  Receive Date: 20240603
  Receipt Date: 20240610
  Transmission Date: 20240715
  Serious: Yes (Other)
  Sender: FDA-Public Use
  Company Number: CN-JNJFOC-20240579637

PATIENT
  Age: 37 Year
  Sex: Male

DRUGS (4)
  1. REMICADE [Interacting]
     Active Substance: INFLIXIMAB
     Indication: Ankylosing spondylitis
     Route: 041
  2. REMICADE [Interacting]
     Active Substance: INFLIXIMAB
     Indication: Colitis ulcerative
     Route: 041
  3. AZATHIOPRINE [Interacting]
     Active Substance: AZATHIOPRINE
     Indication: Ankylosing spondylitis
     Route: 065
  4. AZATHIOPRINE [Interacting]
     Active Substance: AZATHIOPRINE
     Indication: Colitis ulcerative

REACTIONS (3)
  - Opportunistic infection [Recovered/Resolved]
  - Myopathy [Recovered/Resolved]
  - Drug interaction [Unknown]
